FAERS Safety Report 6613977-0 (Version None)
Quarter: 2010Q1

REPORT INFORMATION
  Report Type: 
  Country: None (occurrence: None)
  Receive Date: 20100225
  Receipt Date: 20100212
  Transmission Date: 20100710
  Serious: Yes (Hospitalization, Other)
  Sender: FDA-Public Use
  Company Number: 006494

PATIENT
  Sex: Male
  Weight: 72 kg

DRUGS (3)
  1. KEPPRA [Suspect]
     Indication: PARTIAL SEIZURES
     Dosage: (3000 MG, 2-0-1 REGIMEN (2000MG + 0MG + 1000MG) ORAL)
     Route: 048
     Dates: start: 20060101
  2. TEGRETOL [Suspect]
     Indication: PARTIAL SEIZURES
     Dosage: (200 MG BID ORAL)
     Route: 048
     Dates: start: 20091018, end: 20100106
  3. VALPROIC ACID [Concomitant]

REACTIONS (3)
  - ARTHRALGIA [None]
  - MUSCLE SPASMS [None]
  - MYALGIA [None]
